FAERS Safety Report 13959071 (Version 1)
Quarter: 2017Q3

REPORT INFORMATION
  Report Type: Spontaneous
  Country: US (occurrence: US)
  Receive Date: 20170912
  Receipt Date: 20170912
  Transmission Date: 20171128
  Serious: No
  Sender: FDA-Public Use
  Company Number: US-JNJFOC-20170810000

PATIENT
  Age: 66 Year
  Sex: Male
  Weight: 106.6 kg

DRUGS (5)
  1. ZYRTEC [Suspect]
     Active Substance: CETIRIZINE HYDROCHLORIDE
     Indication: MULTIPLE ALLERGIES
     Dosage: 1 TABLET, 14 HOURS APART
     Route: 048
  2. ZYRTEC [Suspect]
     Active Substance: CETIRIZINE HYDROCHLORIDE
     Indication: RHINORRHOEA
     Dosage: 1 TABLET, 14 HOURS APART
     Route: 048
  3. ZYRTEC [Suspect]
     Active Substance: CETIRIZINE HYDROCHLORIDE
     Indication: OROPHARYNGEAL PAIN
     Dosage: 1 TABLET, 14 HOURS APART
     Route: 048
  4. ZYRTEC [Suspect]
     Active Substance: CETIRIZINE HYDROCHLORIDE
     Indication: COUGH
     Dosage: 1 TABLET, 14 HOURS APART
     Route: 048
  5. ZYRTEC [Suspect]
     Active Substance: CETIRIZINE HYDROCHLORIDE
     Indication: THROAT IRRITATION
     Dosage: 1 TABLET, 14 HOURS APART
     Route: 048

REACTIONS (3)
  - Overdose [Unknown]
  - Drug ineffective for unapproved indication [Unknown]
  - Drug ineffective [Unknown]
